FAERS Safety Report 7295772-5 (Version None)
Quarter: 2011Q1

REPORT INFORMATION
  Report Type: 
  Country: None (occurrence: None)
  Receive Date: 20110216
  Receipt Date: 20110208
  Transmission Date: 20110831
  Serious: Yes (Disabling)
  Sender: FDA-Public Use
  Company Number: AU-ROCHE-728988

PATIENT
  Sex: Female
  Weight: 64 kg

DRUGS (5)
  1. XELODA [Suspect]
     Route: 048
     Dates: start: 20100621, end: 20100809
  2. FOLFOX REGIMEN [Concomitant]
  3. AVASTIN [Concomitant]
     Route: 042
     Dates: start: 20100531
  4. XELODA [Suspect]
     Route: 048
     Dates: start: 20100531, end: 20100621
  5. XELODA [Suspect]
     Route: 048
     Dates: start: 20100809, end: 20100920

REACTIONS (1)
  - PALMAR-PLANTAR ERYTHRODYSAESTHESIA SYNDROME [None]
